FAERS Safety Report 7970095 (Version 5)
Quarter: 2017Q1

REPORT INFORMATION
  Report Type: Report from Study
  Country: GB (occurrence: GB)
  Receive Date: 20110601
  Receipt Date: 20170217
  Transmission Date: 20170429
  Serious: Yes (Life-Threatening, Hospitalization)
  Sender: FDA-Public Use
  Company Number: GB-CELGENEUS-167-20785-11052580

PATIENT
  Age: 66 Year
  Sex: Female

DRUGS (5)
  1. CYCLOPHOSPHAMIDE. [Suspect]
     Active Substance: CYCLOPHOSPHAMIDE
     Indication: PLASMA CELL MYELOMA
     Route: 048
     Dates: start: 20110329, end: 20110512
  2. DEXAMETHASONE. [Suspect]
     Active Substance: DEXAMETHASONE
     Dosage: 20 MILLIGRAM
     Route: 048
     Dates: end: 20110514
  3. DEXAMETHASONE. [Suspect]
     Active Substance: DEXAMETHASONE
     Indication: PLASMA CELL MYELOMA
     Dosage: 40 MILLIGRAM
     Route: 048
     Dates: start: 20110329, end: 20110515
  4. THALIDOMIDE [Suspect]
     Active Substance: THALIDOMIDE
     Indication: PLASMA CELL MYELOMA
     Dosage: 50 MILLIGRAM
     Route: 048
     Dates: start: 20110329, end: 20110514
  5. GENTAMICIN. [Interacting]
     Active Substance: GENTAMICIN
     Indication: PRODUCT USED FOR UNKNOWN INDICATION
     Route: 065

REACTIONS (9)
  - Pubis fracture [Recovering/Resolving]
  - Pulmonary oedema [Recovered/Resolved]
  - Cardiac failure [Recovered/Resolved]
  - Staphylococcal sepsis [Recovering/Resolving]
  - Malnutrition [Recovered/Resolved]
  - Hepatic congestion [Recovered/Resolved]
  - Acute kidney injury [Recovering/Resolving]
  - Radius fracture [Recovered/Resolved]
  - Myocardial infarction [Recovered/Resolved]

NARRATIVE: CASE EVENT DATE: 201104
